FAERS Safety Report 17726913 (Version 1)
Quarter: 2020Q2

REPORT INFORMATION
  Report Type: Spontaneous
  Country: GR (occurrence: GR)
  Receive Date: 20200430
  Receipt Date: 20200430
  Transmission Date: 20200714
  Serious: Yes (Death, Hospitalization)
  Sender: FDA-Public Use
  Company Number: GR-SUN PHARMACEUTICAL INDUSTRIES LTD-2020R1-245316

PATIENT
  Age: 5 Year
  Sex: Male

DRUGS (6)
  1. THIOTEPA. [Suspect]
     Active Substance: THIOTEPA
     Indication: PRODUCT USED FOR UNKNOWN INDICATION
     Dosage: UNK (5MG/KG X 2 FOR ONE DAY)
     Route: 065
  2. METHOTREXATE. [Suspect]
     Active Substance: METHOTREXATE
     Indication: GRAFT VERSUS HOST DISEASE
     Dosage: UNK
     Route: 065
  3. ANTITHYMOCYTE GLOBULIN [Suspect]
     Active Substance: THYMOCYTE IMMUNE GLOBULIN NOS
     Indication: GRAFT VERSUS HOST DISEASE
     Dosage: UNK (7.5 MG/KG TOTAL DOSE)
     Route: 065
  4. BUSULFAN. [Suspect]
     Active Substance: BUSULFAN
     Indication: PRODUCT USED FOR UNKNOWN INDICATION
     Dosage: UNK (1.1 MG/KG FOR FOUR CONSECUTIVE DAYS)
     Route: 065
  5. CYCLOSPORINE. [Suspect]
     Active Substance: CYCLOSPORINE
     Indication: GRAFT VERSUS HOST DISEASE
     Dosage: UNK
     Route: 065
  6. FLUDARABINE [Suspect]
     Active Substance: FLUDARABINE PHOSPHATE
     Indication: PRODUCT USED FOR UNKNOWN INDICATION
     Dosage: UNK (30MG/M2 FOR FIVE CONSECUTIVE DAYS)
     Route: 065

REACTIONS (7)
  - Mucosal inflammation [Recovered/Resolved]
  - Disseminated toxoplasmosis [Fatal]
  - Febrile neutropenia [Recovered/Resolved]
  - Cystitis viral [Unknown]
  - BK virus infection [Unknown]
  - Acute respiratory distress syndrome [Fatal]
  - Respiratory failure [Fatal]
